FAERS Safety Report 23772381 (Version 3)
Quarter: 2024Q4

REPORT INFORMATION
  Report Type: Report from Study
  Country: GR (occurrence: GR)
  Receive Date: 20240423
  Receipt Date: 20241030
  Transmission Date: 20250115
  Serious: Yes (Other)
  Sender: EMD SERONO INC
  Company Number: GR-Merck Healthcare KGaA-2024020667

PATIENT
  Age: 31 Year
  Sex: Female

DRUGS (1)
  1. REBIF [Suspect]
     Active Substance: INTERFERON BETA-1A
     Indication: Multiple sclerosis
     Dosage: CARTRIDGE
     Route: 058
     Dates: start: 20191223, end: 202404

REACTIONS (5)
  - Premature separation of placenta [Recovered/Resolved]
  - Haemorrhage in pregnancy [Recovered/Resolved]
  - Thyroid disorder [Unknown]
  - Live birth [Recovered/Resolved]
  - Maternal exposure during pregnancy [Recovered/Resolved]

NARRATIVE: CASE EVENT DATE: 20240101
